FAERS Safety Report 9439338 (Version 1)
Quarter: 2013Q3

REPORT INFORMATION
  Report Type: Spontaneous
  Country: US (occurrence: US)
  Receive Date: 20130805
  Receipt Date: 20130805
  Transmission Date: 20140515
  Serious: Yes (Other)
  Sender: FDA-Public Use
  Company Number: US-AMGEN-USASP2013053606

PATIENT
  Age: 75 Year
  Sex: Female

DRUGS (3)
  1. PROCRIT [Suspect]
     Indication: ANAEMIA
     Dosage: 10000 UNIT, 3 TIMES/WK
     Route: 065
     Dates: start: 20130710
  2. PROCRIT [Suspect]
     Indication: RENAL FAILURE CHRONIC
  3. CHEMOTHERAPEUTICS [Concomitant]
     Dosage: UNK
     Dates: start: 20130710

REACTIONS (2)
  - Haemoglobin abnormal [Unknown]
  - Haematocrit abnormal [Unknown]
